FAERS Safety Report 5326378-2 (Version None)
Quarter: 2007Q2

REPORT INFORMATION
  Report Type: 
  Country: None (occurrence: None)
  Receive Date: 20070516
  Receipt Date: 20070507
  Transmission Date: 20071010
  Serious: Yes (Death)
  Sender: FDA-Public Use
  Company Number: B0470860A

PATIENT
  Age: 3 Month
  Sex: Male

DRUGS (4)
  1. ZIDOVUDINE [Suspect]
     Indication: HIV INFECTION
     Dosage: 70MG TWICE PER DAY
     Route: 048
     Dates: start: 20061222
  2. LAMIVUDINE [Suspect]
     Indication: HIV INFECTION
     Dosage: 20MG TWICE PER DAY
     Route: 048
     Dates: start: 20061222
  3. KALETRA [Suspect]
     Indication: HIV INFECTION
     Dosage: 1ML TWICE PER DAY
     Route: 048
     Dates: start: 20061222
  4. CO-TRIMOXAZOLE [Concomitant]

REACTIONS (2)
  - GASTROENTERITIS [None]
  - ORAL CANDIDIASIS [None]
